FAERS Safety Report 5236687-3 (Version None)
Quarter: 2007Q1

REPORT INFORMATION
  Report Type: 
  Country: None (occurrence: None)
  Receive Date: 20070209
  Receipt Date: 20070126
  Transmission Date: 20070707
  Serious: Yes (Hospitalization)
  Sender: FDA-Public Use
  Company Number: 8021668

PATIENT
  Age: 17 Year
  Sex: Male

DRUGS (3)
  1. EQUASYM [Suspect]
     Dates: start: 20061121, end: 20070101
  2. PENICILLIN [Suspect]
     Indication: PARONYCHIA
     Dates: start: 20070101, end: 20070101
  3. MEDIKINET [Concomitant]

REACTIONS (3)
  - ABDOMINAL PAIN [None]
  - HEPATIC ENZYME INCREASED [None]
  - PARONYCHIA [None]
